FAERS Safety Report 8198129-8 (Version None)
Quarter: 2012Q1

REPORT INFORMATION
  Report Type: 
  Country: None (occurrence: None)
  Receive Date: 20120309
  Receipt Date: 20120223
  Transmission Date: 20120608
  Serious: Yes (Disabling)
  Sender: FDA-Public Use
  Company Number: GB-WATSON-2012-03611

PATIENT
  Age: 75 Year
  Sex: Female
  Weight: 69.854 kg

DRUGS (32)
  1. RAMIPRIL [Concomitant]
     Indication: PRODUCT USED FOR UNKNOWN INDICATION
     Dosage: UNK
     Route: 065
     Dates: start: 20111223
  2. CLARITHROMYCIN [Suspect]
     Indication: PRODUCT USED FOR UNKNOWN INDICATION
     Dosage: UNK
     Route: 065
     Dates: start: 20120213
  3. AMLODIPINE [Concomitant]
     Dosage: UNK
     Route: 065
     Dates: start: 20111207, end: 20120104
  4. METFORMIN HCL [Concomitant]
     Dosage: UNK
     Route: 065
     Dates: start: 20120111, end: 20120208
  5. ACETAMINOPHEN [Concomitant]
     Dosage: UNK
     Route: 065
     Dates: start: 20111207, end: 20111221
  6. FUROSEMIDE [Concomitant]
     Indication: PRODUCT USED FOR UNKNOWN INDICATION
     Dosage: UNK
     Route: 065
     Dates: start: 20111130
  7. GLIMEPIRIDE [Concomitant]
     Indication: PRODUCT USED FOR UNKNOWN INDICATION
     Dosage: UNK
     Route: 065
     Dates: start: 20111223, end: 20120122
  8. AMLODIPINE [Concomitant]
     Indication: PRODUCT USED FOR UNKNOWN INDICATION
     Dosage: UNK
     Route: 065
     Dates: start: 20111031, end: 20111128
  9. FERROUS SULFATE TAB [Concomitant]
     Dosage: UNK
     Route: 065
     Dates: start: 20111207
  10. HYOSCINE BUTYLBROMIDE [Concomitant]
     Dosage: UNK
     Route: 065
     Dates: start: 20120104, end: 20120118
  11. LANSOPRAZOLE [Concomitant]
     Dosage: UNK
     Route: 065
     Dates: start: 20111207
  12. METFORMIN HCL [Concomitant]
     Indication: PRODUCT USED FOR UNKNOWN INDICATION
     Dosage: UNK
     Route: 065
     Dates: start: 20111031, end: 20111128
  13. MOVELAT                            /00479601/ [Concomitant]
     Dosage: UNK
     Route: 065
     Dates: start: 20111207
  14. ACETAMINOPHEN [Concomitant]
     Indication: PRODUCT USED FOR UNKNOWN INDICATION
     Dosage: UNK
     Route: 065
     Dates: start: 20111031, end: 20111114
  15. BUPRENORPHINE [Concomitant]
     Indication: PRODUCT USED FOR UNKNOWN INDICATION
     Dosage: UNK
     Route: 065
     Dates: start: 20111031, end: 20111128
  16. HYOSCINE BUTYLBROMIDE [Concomitant]
     Indication: PRODUCT USED FOR UNKNOWN INDICATION
     Dosage: UNK
     Route: 065
     Dates: start: 20111031, end: 20111128
  17. HYOSCINE BUTYLBROMIDE [Concomitant]
     Dosage: UNK
     Route: 065
     Dates: start: 20111207, end: 20111221
  18. HYOSCINE BUTYLBROMIDE [Concomitant]
     Dosage: UNK
     Route: 065
     Dates: start: 20120201
  19. MOVELAT                            /00479601/ [Concomitant]
     Indication: PRODUCT USED FOR UNKNOWN INDICATION
     Dosage: UNK
     Route: 065
     Dates: start: 20111031, end: 20111128
  20. AMITRIPTYLINE HCL [Concomitant]
     Indication: PRODUCT USED FOR UNKNOWN INDICATION
     Dosage: UNK
     Route: 065
     Dates: start: 20111031, end: 20111128
  21. ATORVASTATIN [Concomitant]
     Indication: PRODUCT USED FOR UNKNOWN INDICATION
     Dosage: UNK
     Route: 065
     Dates: start: 20111031, end: 20111128
  22. METFORMIN HCL [Concomitant]
     Dosage: UNK
     Route: 065
     Dates: start: 20111207, end: 20120104
  23. SPIRONOLACTONE [Concomitant]
     Indication: PRODUCT USED FOR UNKNOWN INDICATION
     Dosage: UNK
     Route: 065
     Dates: start: 20111130
  24. LANSOPRAZOLE [Concomitant]
     Indication: PRODUCT USED FOR UNKNOWN INDICATION
     Dosage: UNK
     Route: 065
     Dates: start: 20111031, end: 20111128
  25. ACETAMINOPHEN [Concomitant]
     Dosage: UNK
     Route: 065
     Dates: start: 20120104, end: 20120118
  26. ACETAMINOPHEN [Concomitant]
     Dosage: UNK
     Route: 065
     Dates: start: 20120201
  27. QUININE SULFATE [Concomitant]
     Indication: PRODUCT USED FOR UNKNOWN INDICATION
     Dosage: UNK
     Route: 065
     Dates: start: 20111031, end: 20111130
  28. QUININE SULFATE [Concomitant]
     Dosage: UNK
     Route: 065
     Dates: start: 20111223
  29. AMITRIPTYLINE HCL [Concomitant]
     Dosage: UNK
     Route: 065
     Dates: start: 20111207
  30. ATORVASTATIN [Concomitant]
     Dosage: UNK
     Route: 065
     Dates: start: 20111207
  31. BUPRENORPHINE [Concomitant]
     Dosage: UNK
     Route: 065
     Dates: start: 20111207
  32. FERROUS SULFATE TAB [Concomitant]
     Indication: PRODUCT USED FOR UNKNOWN INDICATION
     Dosage: UNK
     Route: 065
     Dates: start: 20111031, end: 20111128

REACTIONS (2)
  - HEADACHE [None]
  - MALAISE [None]
